FAERS Safety Report 6199980-6 (Version None)
Quarter: 2009Q2

REPORT INFORMATION
  Report Type: 
  Country: None (occurrence: None)
  Receive Date: 20090518
  Receipt Date: 20090205
  Transmission Date: 20091009
  Serious: No
  Sender: FDA-Public Use
  Company Number: WAES 0812USA01994

PATIENT
  Age: 73 Year
  Sex: Female
  Weight: 81.6475 kg

DRUGS (7)
  1. JANUVIA [Suspect]
     Indication: TYPE 2 DIABETES MELLITUS
     Dosage: 100 MG/DAILY/PO
     Route: 048
     Dates: start: 20071001, end: 20081201
  2. ACTOS [Concomitant]
  3. BENICAR HCT [Concomitant]
  4. CRESTOR [Concomitant]
  5. NORVASC [Concomitant]
  6. DILTIAZEM HYDROCHLORIDE [Concomitant]
  7. LORAZEPAM [Concomitant]

REACTIONS (1)
  - BRONCHITIS [None]
